FAERS Safety Report 6533979-2 (Version None)
Quarter: 2010Q1

REPORT INFORMATION
  Report Type: 
  Country: None (occurrence: None)
  Receive Date: 20100112
  Receipt Date: 20100105
  Transmission Date: 20100710
  Serious: Yes (Hospitalization)
  Sender: FDA-Public Use
  Company Number: US-ROCHE-655496

PATIENT
  Sex: Female
  Weight: 46.7 kg

DRUGS (1)
  1. CAPECITABINE [Suspect]
     Indication: COLORECTAL CANCER
     Dosage: FREQUENCY: 2 WEEKS ON + 1 WEEK OFF
     Route: 048
     Dates: start: 20090727, end: 20091221

REACTIONS (1)
  - HOSPITALISATION [None]
